FAERS Safety Report 10057889 (Version 1)
Quarter: 2014Q2

REPORT INFORMATION
  Report Type: Spontaneous
  Country: US (occurrence: None)
  Receive Date: 20140403
  Receipt Date: 20140403
  Transmission Date: 20141212
  Serious: Yes (Life-Threatening)
  Sender: FDA-Public Use
  Company Number: None

PATIENT
  Age: 17 Year
  Sex: Male

DRUGS (1)
  1. TRIMETHOPRIM/SULFAMETHOXAZOLE [Suspect]
     Dosage: BUCTRIM, BID, ORAL
     Route: 048

REACTIONS (4)
  - Drug-induced liver injury [None]
  - Cholestasis [None]
  - Pyrexia [None]
  - Unevaluable event [None]
